FAERS Safety Report 9486643 (Version 1)
Quarter: 2013Q3

REPORT INFORMATION
  Report Type: Spontaneous
  Country: FR (occurrence: FR)
  Receive Date: 20130829
  Receipt Date: 20130829
  Transmission Date: 20140515
  Serious: Yes (Hospitalization)
  Sender: FDA-Public Use
  Company Number: FR-SANOFI-AVENTIS-2013SA083916

PATIENT
  Age: 82 Year
  Sex: Male

DRUGS (8)
  1. COAPROVEL [Suspect]
     Indication: PRODUCT USED FOR UNKNOWN INDICATION
     Route: 048
     Dates: end: 20130218
  2. ARAVA [Suspect]
     Indication: ARTHRALGIA
     Route: 048
     Dates: start: 201212, end: 20130218
  3. GLIVEC [Suspect]
     Indication: GASTROINTESTINAL NEOPLASM
     Route: 048
     Dates: start: 20121219, end: 20130218
  4. GLIVEC [Suspect]
     Indication: GASTROINTESTINAL NEOPLASM
     Route: 048
     Dates: start: 20130226, end: 20130306
  5. COLCHICINE [Suspect]
     Indication: ARTHRALGIA
     Route: 048
     Dates: start: 201212, end: 20130218
  6. CORTANCYL [Concomitant]
     Dosage: STRENGTH: 5 MG
     Route: 048
  7. COUMADINE [Concomitant]
     Route: 048
  8. IXPRIM [Concomitant]
     Route: 048

REACTIONS (2)
  - Neutropenia [Recovered/Resolved]
  - Pyrexia [Recovered/Resolved]
